APPROVED DRUG PRODUCT: NALOXONE HYDROCHLORIDE
Active Ingredient: NALOXONE HYDROCHLORIDE
Strength: 0.4MG/ML
Dosage Form/Route: INJECTABLE;INJECTION
Application: A072088 | Product #001
Applicant: IGI LABORATORIES INC
Approved: Apr 11, 1989 | RLD: No | RS: No | Type: DISCN